FAERS Safety Report 7699926-5 (Version None)
Quarter: 2011Q3

REPORT INFORMATION
  Report Type: 
  Country: None (occurrence: None)
  Receive Date: 20110822
  Receipt Date: 20110810
  Transmission Date: 20111222
  Serious: Yes (Other)
  Sender: FDA-Public Use
  Company Number: IT-JNJFOC-20110806377

PATIENT
  Age: 48 Year
  Sex: Male

DRUGS (7)
  1. SIMPONI [Suspect]
     Indication: ANKYLOSING SPONDYLITIS
     Route: 042
     Dates: start: 20110211, end: 20110302
  2. TENORMIN [Concomitant]
     Dates: start: 20081229
  3. COLCHICINE [Concomitant]
     Dates: start: 20081229
  4. NEORECORMON [Suspect]
     Indication: RENAL FAILURE CHRONIC
     Dates: start: 20081228
  5. DIBASE [Concomitant]
     Dates: start: 20081229
  6. METHYLPREDNISOLONE [Suspect]
     Indication: PRODUCT USED FOR UNKNOWN INDICATION
     Route: 048
     Dates: start: 20101209
  7. NORVASC [Concomitant]
     Dates: start: 20081229

REACTIONS (1)
  - CUTANEOUS VASCULITIS [None]
